FAERS Safety Report 26152842 (Version 1)
Quarter: 2025Q4

REPORT INFORMATION
  Report Type: Report from Study
  Country: CN (occurrence: CN)
  Receive Date: 20251214
  Receipt Date: 20251214
  Transmission Date: 20260117
  Serious: Yes (Other)
  Sender: ELI LILLY AND COMPANY
  Company Number: CN-ELI_LILLY_AND_COMPANY-CN202404001224

PATIENT
  Age: 59 Year
  Sex: Female
  Weight: 53 kg

DRUGS (13)
  1. ABEMACICLIB [Suspect]
     Active Substance: ABEMACICLIB
     Indication: Breast cancer
     Dosage: 150 MG, BID
     Route: 048
     Dates: start: 20240213, end: 20240504
  2. ABEMACICLIB [Suspect]
     Active Substance: ABEMACICLIB
     Dosage: 150 MG, BID
     Route: 048
     Dates: end: 20241112
  3. ABEMACICLIB [Suspect]
     Active Substance: ABEMACICLIB
     Dosage: 100 MG, BID
     Route: 048
     Dates: start: 20241112
  4. ABEMACICLIB [Suspect]
     Active Substance: ABEMACICLIB
     Dosage: 100 MG, BID
     Route: 048
  5. ABEMACICLIB [Suspect]
     Active Substance: ABEMACICLIB
     Dosage: 100 MG, BID
     Route: 048
  6. ABEMACICLIB [Suspect]
     Active Substance: ABEMACICLIB
     Dosage: 100 MG, OTHER (TWICE A DAY 100MG AND 50MG)
     Route: 065
  7. ABEMACICLIB [Suspect]
     Active Substance: ABEMACICLIB
     Dosage: 50 MG, OTHER (TWICE A DAY 100MG AND 50MG)
     Route: 065
  8. ABEMACICLIB [Suspect]
     Active Substance: ABEMACICLIB
     Dosage: 150 MG, BID
     Route: 065
  9. EXEMESTANE [Concomitant]
     Active Substance: EXEMESTANE
     Indication: Product used for unknown indication
  10. BICYCLOL [Concomitant]
     Active Substance: BICYCLOL
     Indication: Product used for unknown indication
     Dosage: UNK UNK, DAILY (1 PILL)
  11. TIAN QING GAN PING [Concomitant]
     Indication: Product used for unknown indication
  12. LI GAN LONG [Concomitant]
     Indication: Product used for unknown indication
  13. DIETARY SUPPLEMENT\HERBALS\MILK THISTLE [Concomitant]
     Active Substance: MILK THISTLE
     Indication: Product used for unknown indication

REACTIONS (30)
  - Near death experience [Unknown]
  - Renal impairment [Recovering/Resolving]
  - Blood albumin decreased [Recovering/Resolving]
  - Immunodeficiency [Recovering/Resolving]
  - Pyrexia [Recovering/Resolving]
  - Respiratory tract inflammation [Recovering/Resolving]
  - Tumour marker increased [Unknown]
  - White blood cell count increased [Recovered/Resolved]
  - Blood uric acid increased [Recovering/Resolving]
  - Protein urine present [Unknown]
  - Heart rate increased [Unknown]
  - Hepatic function abnormal [Unknown]
  - Oedema peripheral [Unknown]
  - Haemoglobin increased [Unknown]
  - Carbohydrate antigen 15-3 increased [Unknown]
  - Pyrexia [Unknown]
  - Blepharospasm [Unknown]
  - Hyperlipidaemia [Unknown]
  - Calcium deficiency [Unknown]
  - Neutrophil count decreased [Recovered/Resolved]
  - Blood creatinine increased [Recovering/Resolving]
  - Red blood cell count decreased [Recovering/Resolving]
  - White blood cell count decreased [Recovered/Resolved]
  - Aspartate aminotransferase increased [Recovering/Resolving]
  - Respiratory tract infection [Recovering/Resolving]
  - Rash [Recovered/Resolved]
  - Diarrhoea [Recovering/Resolving]
  - Anaemia [Unknown]
  - Nasopharyngitis [Unknown]
  - Urinary tract infection [Unknown]
